FAERS Safety Report 5704869-X (Version None)
Quarter: 2008Q2

REPORT INFORMATION
  Report Type: 
  Country: None (occurrence: None)
  Receive Date: 20080414
  Receipt Date: 20080401
  Transmission Date: 20081010
  Serious: Yes (Hospitalization)
  Sender: FDA-Public Use
  Company Number: SE-BAYER-200815971GPV

PATIENT
  Age: 38 Year
  Sex: Female

DRUGS (7)
  1. MIRENA [Suspect]
     Indication: CONTRACEPTION
     Route: 015
     Dates: start: 20070305
  2. CYTOTEC VS PLACEBO [Suspect]
     Route: 060
     Dates: start: 20070305, end: 20070305
  3. MIRENA [Suspect]
     Route: 015
     Dates: start: 20020301, end: 20070305
  4. IPREN [Concomitant]
     Indication: DYSMENORRHOEA
     Route: 048
  5. CEPHALEXIN [Concomitant]
     Indication: PNEUMONIA
     Route: 048
     Dates: start: 20070221, end: 20070225
  6. ALVEDON [Concomitant]
     Indication: PROCEDURAL PAIN
     Route: 048
     Dates: start: 20070305, end: 20070305
  7. TREO [Concomitant]
     Indication: HEADACHE
     Route: 048

REACTIONS (2)
  - BENIGN INTRACRANIAL HYPERTENSION [None]
  - POST LUMBAR PUNCTURE SYNDROME [None]
